FAERS Safety Report 13855313 (Version 1)
Quarter: 2017Q3

REPORT INFORMATION
  Report Type: Spontaneous
  Country: US (occurrence: US)
  Receive Date: 20170810
  Receipt Date: 20170810
  Transmission Date: 20171127
  Serious: No
  Sender: FDA-Public Use
  Company Number: US-VIFOR (INTERNATIONAL) INC.-VIT-2017-04661

PATIENT
  Age: 67 Year
  Sex: Female

DRUGS (13)
  1. BETAMETHASONE. [Concomitant]
     Active Substance: BETAMETHASONE
  2. IRBESARTAN. [Concomitant]
     Active Substance: IRBESARTAN
  3. VELTASSA [Suspect]
     Active Substance: PATIROMER
     Indication: HYPERKALAEMIA
     Route: 048
     Dates: start: 20170211
  4. GLIPIZIDE. [Concomitant]
     Active Substance: GLIPIZIDE
  5. PYRIDOXINE HYDROCHLORIDE. [Concomitant]
     Active Substance: PYRIDOXINE HYDROCHLORIDE
  6. B3/AZEL/TURN [Concomitant]
  7. ALENDRONATE SODIUM. [Concomitant]
     Active Substance: ALENDRONATE SODIUM
  8. BACLOFEN. [Concomitant]
     Active Substance: BACLOFEN
  9. PRESERVISION [Concomitant]
     Active Substance: MINERALS\VITAMINS
  10. ATENOLOL. [Concomitant]
     Active Substance: ATENOLOL
  11. B6 NATURAL [Concomitant]
  12. METFORMIN [Concomitant]
     Active Substance: METFORMIN HYDROCHLORIDE
  13. ATORVASTATIN [Concomitant]
     Active Substance: ATORVASTATIN

REACTIONS (2)
  - Hypertension [Unknown]
  - Dizziness [Unknown]

NARRATIVE: CASE EVENT DATE: 201702
